FAERS Safety Report 7919432-X (Version None)
Quarter: 2011Q4

REPORT INFORMATION
  Report Type: 
  Country: None (occurrence: None)
  Receive Date: 20111117
  Receipt Date: 20111103
  Transmission Date: 20120403
  Serious: Yes (Other)
  Sender: FDA-Public Use
  Company Number: NL-MYLANLABS-2011S1022801

PATIENT
  Age: 22 Year

DRUGS (1)
  1. RANITIDINE [Suspect]
     Indication: GASTRIC DISORDER

REACTIONS (10)
  - DYSGEUSIA [None]
  - GASTROOESOPHAGEAL REFLUX DISEASE [None]
  - ABDOMINAL PAIN [None]
  - NAUSEA [None]
  - FEELING COLD [None]
  - FLATULENCE [None]
  - MALAISE [None]
  - NERVOUSNESS [None]
  - SWELLING FACE [None]
  - DIZZINESS [None]
